FAERS Safety Report 5594240-6 (Version None)
Quarter: 2008Q1

REPORT INFORMATION
  Report Type: 
  Country: None (occurrence: None)
  Receive Date: 20080117
  Receipt Date: 20080114
  Transmission Date: 20080703
  Serious: Yes (Other)
  Sender: FDA-Public Use
  Company Number: US-BRISTOL-MYERS SQUIBB COMPANY-13949425

PATIENT

DRUGS (4)
  1. ATAZANAVIR SULFATE [Suspect]
     Indication: HIV INFECTION
  2. DIDANOSINE [Suspect]
     Indication: HIV INFECTION
  3. RITONAVIR [Suspect]
     Indication: HIV INFECTION
  4. EMTRICITABINE [Suspect]
     Indication: HIV INFECTION

REACTIONS (3)
  - DERMATITIS ALLERGIC [None]
  - PYREXIA [None]
  - STOMATITIS [None]
